FAERS Safety Report 6886842-1 (Version None)
Quarter: 2010Q3

REPORT INFORMATION
  Report Type: 
  Country: None (occurrence: None)
  Receive Date: 20100730
  Receipt Date: 20100723
  Transmission Date: 20110219
  Serious: Yes (Other)
  Sender: FDA-Public Use
  Company Number: US-ASTRAZENECA-2009UW21593

PATIENT
  Age: 557 Month
  Sex: Male
  Weight: 122.5 kg

DRUGS (7)
  1. SEROQUEL [Suspect]
     Indication: INSOMNIA
     Route: 048
     Dates: start: 19990101, end: 20070101
  2. CLONIDINE [Concomitant]
     Dates: start: 20081213
  3. CLORAZEPATE DIPOTASSIUM [Concomitant]
     Route: 048
     Dates: start: 20081213
  4. INDOMETHACIN [Concomitant]
     Route: 048
     Dates: start: 20081213
  5. NORTRIPTYLINE [Concomitant]
     Route: 048
     Dates: start: 20081213
  6. NORVASC [Concomitant]
     Route: 048
     Dates: start: 20081213
  7. ULTRAN [Concomitant]
     Dosage: 50-100 MG Q 4 PRN
     Route: 048
     Dates: start: 20081213

REACTIONS (5)
  - BLOOD CHOLESTEROL INCREASED [None]
  - HYPERLIPIDAEMIA [None]
  - NEUROPATHY PERIPHERAL [None]
  - OBESITY [None]
  - TYPE 2 DIABETES MELLITUS [None]
